FAERS Safety Report 12697717 (Version 1)
Quarter: 2016Q3

REPORT INFORMATION
  Report Type: Spontaneous
  Country: US (occurrence: None)
  Receive Date: 20160829
  Receipt Date: 20160829
  Transmission Date: 20161109
  Serious: Yes (Hospitalization)
  Sender: FDA-Public Use
  Company Number: None

PATIENT
  Age: 72 Year
  Sex: Male
  Weight: 84 kg

DRUGS (3)
  1. DENOSUMAB (XGEVA) [Concomitant]
  2. OPDIVO [Suspect]
     Active Substance: NIVOLUMAB
     Indication: RENAL CELL CARCINOMA STAGE II
     Dosage: 276 MG EVERY 2 WEEKS INTRAVENOUS (NOT OTHERWISE STATED)
     Route: 042
     Dates: start: 20160222
  3. NIVOLUMAB [Concomitant]
     Active Substance: NIVOLUMAB

REACTIONS (3)
  - Malignant neoplasm progression [None]
  - Haemolytic anaemia [None]
  - Diabetes mellitus [None]

NARRATIVE: CASE EVENT DATE: 20160802
